FAERS Safety Report 9100008 (Version 1)
Quarter: 2013Q1

REPORT INFORMATION
  Report Type: Report from Study
  Country: US (occurrence: US)
  Receive Date: 20130215
  Receipt Date: 20130215
  Transmission Date: 20140127
  Serious: No
  Sender: FDA-Public Use
  Company Number: US-VERTEX PHARMACEUTICALS INC.-2013-002025

PATIENT
  Age: 63 Year
  Sex: Female
  Weight: 63 kg

DRUGS (8)
  1. VX-950 (TELAPREVIR) [Suspect]
     Indication: HEPATITIS C
     Dosage: 750 MG, TID
     Route: 048
  2. PEGASYS [Suspect]
     Indication: HEPATITIS C
  3. RIBAVIRIN [Suspect]
     Indication: HEPATITIS C
  4. NORTRIPTYLIN [Concomitant]
     Dosage: 75 MG, UNK
  5. PROMETHAZINE [Concomitant]
     Dosage: 25 MG, UNK
  6. TRAZODONE [Concomitant]
     Dosage: 100 MG, UNK
  7. XANAX [Concomitant]
     Dosage: 0.25 MG, UNK
  8. MULTIVITAMIN [Concomitant]

REACTIONS (6)
  - Skin ulcer [Recovered/Resolved]
  - Tongue disorder [Unknown]
  - Oral pain [Unknown]
  - Tongue exfoliation [Unknown]
  - Fatigue [Unknown]
  - Rash [Recovered/Resolved]
